FAERS Safety Report 8401941-0 (Version None)
Quarter: 2012Q2

REPORT INFORMATION
  Report Type: 
  Country: None (occurrence: None)
  Receive Date: 20120601
  Receipt Date: 20120529
  Transmission Date: 20120825
  Serious: Yes (Hospitalization, Other)
  Sender: FDA-Public Use
  Company Number: BR-PFIZER INC-2012129008

PATIENT
  Age: 64 Year
  Sex: Male
  Weight: 80 kg

DRUGS (1)
  1. ALPRAZOLAM [Suspect]
     Indication: SLEEP DISORDER
     Dosage: 0.5 MG, 2X/DAY
     Route: 048
     Dates: start: 19920529

REACTIONS (3)
  - ASTHMA [None]
  - HYPERTENSION [None]
  - DIVERTICULITIS [None]
